FAERS Safety Report 17494329 (Version 1)
Quarter: 2020Q1

REPORT INFORMATION
  Report Type: Spontaneous
  Country: US (occurrence: US)
  Receive Date: 20200303
  Receipt Date: 20200303
  Transmission Date: 20200409
  Serious: No
  Sender: FDA-Public Use
  Company Number: US-AMNEAL PHARMACEUTICALS-2019-IPXL-01570

PATIENT
  Sex: Female
  Weight: 59 kg

DRUGS (6)
  1. SINEMET [Concomitant]
     Active Substance: CARBIDOPA\LEVODOPA
     Indication: DYSKINESIA
     Dosage: HALF A TABLET 4 TIMES DAILY
     Route: 065
     Dates: start: 2019
  2. RYTARY [Suspect]
     Active Substance: CARBIDOPA\LEVODOPA
     Dosage: 23.75-95MG, 1 DOSAGE FORM, 4 /DAY,
     Route: 048
     Dates: start: 2019
  3. AMANTADINE. [Concomitant]
     Active Substance: AMANTADINE HYDROCHLORIDE
     Indication: DYSKINESIA
     Dosage: 100 MILLIGRAM, 2 /DAY
     Route: 065
     Dates: start: 2019
  4. RYTARY [Suspect]
     Active Substance: CARBIDOPA\LEVODOPA
     Indication: PARKINSON^S DISEASE
     Dosage: 23.75-95MG, 2 DOSAGE FORM, 4 /DAY,
     Route: 048
     Dates: start: 20190627, end: 201907
  5. RYTARY [Suspect]
     Active Substance: CARBIDOPA\LEVODOPA
     Dosage: 36.25-145 MG, 1 DOSAGE FORM, EVERY 4HR FOR TOTAL 4 DOSES
     Route: 048
     Dates: start: 201907, end: 2019
  6. PRAMIPEXOLE. [Concomitant]
     Active Substance: PRAMIPEXOLE
     Indication: DYSKINESIA
     Dosage: 1 MILLIGRAM, 3 /DAY
     Route: 065
     Dates: start: 2019

REACTIONS (2)
  - Dyskinesia [Not Recovered/Not Resolved]
  - Drug ineffective [Unknown]

NARRATIVE: CASE EVENT DATE: 2019
